FAERS Safety Report 16900029 (Version 1)
Quarter: 2019Q4

REPORT INFORMATION
  Report Type: Spontaneous
  Country: CA (occurrence: CA)
  Receive Date: 20191009
  Receipt Date: 20191009
  Transmission Date: 20200122
  Serious: Yes (Death, Hospitalization, Other)
  Sender: FDA-Public Use
  Company Number: CA-PFIZER INC-2019431532

PATIENT
  Sex: Male

DRUGS (5)
  1. DOXORUBICIN HCL [Suspect]
     Active Substance: DOXORUBICIN HYDROCHLORIDE
     Dosage: UNK
     Route: 042
  2. RITUXAN [Suspect]
     Active Substance: RITUXIMAB
     Dosage: UNK
     Route: 042
  3. CYCLOPHOSPHAMIDE. [Suspect]
     Active Substance: CYCLOPHOSPHAMIDE
     Dosage: UNK
  4. VINCRISTINE SULFATE. [Suspect]
     Active Substance: VINCRISTINE SULFATE
     Dosage: UNK
  5. PREDNISONE. [Suspect]
     Active Substance: PREDNISONE
     Dosage: UNK

REACTIONS (10)
  - Respiratory failure [Fatal]
  - Blood calcium decreased [Fatal]
  - Blood phosphorus increased [Fatal]
  - Blood potassium increased [Fatal]
  - Tumour lysis syndrome [Fatal]
  - Bradycardia [Fatal]
  - Cytokine release syndrome [Fatal]
  - Hypotension [Fatal]
  - Blood creatinine increased [Fatal]
  - Blood pH decreased [Fatal]
